FAERS Safety Report 7639695-8 (Version None)
Quarter: 2011Q3

REPORT INFORMATION
  Report Type: 
  Country: None (occurrence: None)
  Receive Date: 20110727
  Receipt Date: 20110712
  Transmission Date: 20111222
  Serious: Yes (Other)
  Sender: FDA-Public Use
  Company Number: GB-WATSON-2011-10905

PATIENT
  Age: 64 Year
  Sex: Female

DRUGS (5)
  1. PREDNISOLONE [Concomitant]
     Indication: PYODERMA GANGRENOSUM
     Dosage: 60 MG, DAILY
     Route: 065
  2. FLOXACILLIN SODIUM [Concomitant]
     Indication: OSTEOMYELITIS
     Dosage: UNK
     Route: 065
  3. TACROLIMUS [Suspect]
     Indication: PYODERMA GANGRENOSUM
     Dosage: 5 MG, BID
     Route: 065
  4. CIPROFLOXACIN [Concomitant]
     Indication: OSTEOMYELITIS
     Dosage: UNK
     Route: 065
  5. CYCLOSPORINE [Suspect]
     Indication: PYODERMA GANGRENOSUM
     Dosage: 100 MG, BID
     Route: 048

REACTIONS (3)
  - MYOPATHY [None]
  - DISEASE RECURRENCE [None]
  - MUSCULAR WEAKNESS [None]
